FAERS Safety Report 15361556 (Version 1)
Quarter: 2018Q3

REPORT INFORMATION
  Report Type: Spontaneous
  Country: US (occurrence: US)
  Receive Date: 20180907
  Receipt Date: 20180907
  Transmission Date: 20181010
  Serious: No
  Sender: FDA-Public Use
  Company Number: US-TOLMAR, INC.-2018US002538

PATIENT

DRUGS (25)
  1. TRAVATAN Z [Concomitant]
     Active Substance: TRAVOPROST
  2. ELIGARD [Suspect]
     Active Substance: LEUPROLIDE ACETATE
     Dosage: 30 MG, 4 MONTH DOSE
     Dates: start: 20170123
  3. LIPITOR [Concomitant]
     Active Substance: ATORVASTATIN CALCIUM
     Dosage: 1 UNK, DAILY
     Route: 048
     Dates: start: 20161028
  4. DITROPAN UD [Concomitant]
     Dosage: UNK
     Dates: start: 20170123
  5. EFFEXOR [Concomitant]
     Active Substance: VENLAFAXINE HYDROCHLORIDE
     Dosage: 1 UNK, DAILY WITH FOOD
     Route: 048
     Dates: start: 20171002
  6. ELIGARD [Suspect]
     Active Substance: LEUPROLIDE ACETATE
     Indication: PROSTATE CANCER METASTATIC
     Dosage: 30 MG, 4 MONTH DOSE
     Dates: start: 20160920
  7. ZYLOPRIM [Concomitant]
     Active Substance: ALLOPURINOL
     Dosage: UNK
     Dates: start: 20170213
  8. LOSARTAN. [Concomitant]
     Active Substance: LOSARTAN
     Dosage: 1 UNK, DAILY
     Route: 048
     Dates: start: 20161028
  9. THERAGRAN                          /01824401/ [Concomitant]
     Dosage: 1 UNK, DAILY
  10. ELIGARD [Suspect]
     Active Substance: LEUPROLIDE ACETATE
     Dosage: 30 MG, 4 MONTH DOSE
     Route: 065
     Dates: start: 20170601
  11. ELIGARD [Suspect]
     Active Substance: LEUPROLIDE ACETATE
     Dosage: 30 MG, 4 MONTH DOSE
     Route: 065
     Dates: start: 20171002
  12. MYRBETRIQ [Concomitant]
     Active Substance: MIRABEGRON
     Indication: MICTURITION URGENCY
  13. DITROPAN UD [Concomitant]
     Indication: URGE INCONTINENCE
     Dosage: 15 MG, DAILY
     Route: 048
  14. COZAAR [Concomitant]
     Active Substance: LOSARTAN POTASSIUM
     Route: 048
  15. PERCOCET                           /00446701/ [Concomitant]
     Active Substance: ACETAMINOPHEN\OXYCODONE HYDROCHLORIDE\OXYCODONE TEREPHTHALATE
     Dosage: 1?2 TABLETS, EVERY 4 HOURS
     Route: 048
  16. DIOVAN HCT [Concomitant]
     Active Substance: HYDROCHLOROTHIAZIDE\VALSARTAN
     Dosage: UNK
     Dates: start: 20150831
  17. CALCIUM [Concomitant]
     Active Substance: CALCIUM
     Dosage: 100 MG, DAILY
     Route: 048
  18. VALSARTAN. [Concomitant]
     Active Substance: VALSARTAN
     Dosage: 1 TABLET, DAILY
     Route: 048
     Dates: start: 20160526
  19. COMBIGAN [Concomitant]
     Active Substance: BRIMONIDINE TARTRATE\TIMOLOL MALEATE
  20. FIRMAGON [Suspect]
     Active Substance: DEGARELIX ACETATE
     Indication: PROSTATE CANCER METASTATIC
     Route: 003
  21. ZYLOPRIM [Concomitant]
     Active Substance: ALLOPURINOL
     Dosage: 1 TABLET, DAILY
     Route: 048
     Dates: start: 20140729
  22. CIPRO [Concomitant]
     Active Substance: CIPROFLOXACIN HYDROCHLORIDE
     Dosage: 1 UNK, 2 TIMES DAILY
     Route: 048
  23. ZYLOPRIM [Concomitant]
     Active Substance: ALLOPURINOL
     Dosage: 1 TABLET, ONCE DAILY
     Route: 048
     Dates: start: 20160428
  24. LIPITOR [Concomitant]
     Active Substance: ATORVASTATIN CALCIUM
     Dosage: 20 MG, DAILY
     Route: 048
     Dates: start: 20160513
  25. DUREZOL [Concomitant]
     Active Substance: DIFLUPREDNATE

REACTIONS (14)
  - Hypertension [Unknown]
  - Urinary incontinence [Unknown]
  - Drug ineffective [Unknown]
  - Hot flush [Unknown]
  - Prostatic specific antigen increased [Unknown]
  - Off label use [Unknown]
  - Nipple pain [Unknown]
  - Dysuria [Unknown]
  - Nocturia [Recovering/Resolving]
  - Weight decreased [Unknown]
  - Urge incontinence [Recovering/Resolving]
  - Weight increased [Unknown]
  - Product storage error [Unknown]
  - Blood testosterone increased [Unknown]

NARRATIVE: CASE EVENT DATE: 20160428
